FAERS Safety Report 21223547 (Version 1)
Quarter: 2022Q3

REPORT INFORMATION
  Report Type: Spontaneous
  Country: US (occurrence: US)
  Receive Date: 20220817
  Receipt Date: 20220817
  Transmission Date: 20221027
  Serious: Yes (Other)
  Sender: FDA-Public Use
  Company Number: US-GLAND PHARMA LIMITED-2022US003874

PATIENT
  Age: 32 Year
  Sex: Female

DRUGS (2)
  1. MAGNESIUM SULFATE [Suspect]
     Active Substance: MAGNESIUM SULFATE
     Indication: Pre-eclampsia
     Dosage: UNK
     Route: 065
  2. LABETALOL [Concomitant]
     Active Substance: LABETALOL\LABETALOL HYDROCHLORIDE
     Indication: Pre-eclampsia
     Dosage: UNK
     Route: 065

REACTIONS (5)
  - Hypermagnesaemia [Unknown]
  - Dysarthria [Not Recovered/Not Resolved]
  - Confusional state [Unknown]
  - Sleep disorder [Unknown]
  - Maternal exposure during pregnancy [Recovered/Resolved]
